FAERS Safety Report 14846199 (Version 1)
Quarter: 2018Q2

REPORT INFORMATION
  Report Type: Spontaneous
  Country: FR (occurrence: FR)
  Receive Date: 20180504
  Receipt Date: 20180504
  Transmission Date: 20180711
  Serious: Yes (Other)
  Sender: FDA-Public Use
  Company Number: FR-MERCK KGAA-2047195

PATIENT
  Age: 45 Year
  Sex: Female

DRUGS (2)
  1. NOVOTHYROX [Suspect]
     Active Substance: LEVOTHYROXINE SODIUM
     Dates: start: 2000
  2. NOVOTHYROX [Suspect]
     Active Substance: LEVOTHYROXINE SODIUM
     Indication: BASEDOW^S DISEASE
     Dates: start: 2017, end: 20171027

REACTIONS (16)
  - Disturbance in attention [None]
  - Blood thyroid stimulating hormone abnormal [Recovered/Resolved]
  - Abdominal pain upper [None]
  - Dyspepsia [None]
  - Asthenia [None]
  - Abdominal distension [None]
  - Depression [None]
  - Mood swings [None]
  - Confusional state [None]
  - Aphasia [Recovered/Resolved]
  - Memory impairment [None]
  - Sleep disorder [None]
  - Loss of personal independence in daily activities [None]
  - Hyperthyroidism [None]
  - Abdominal pain [None]
  - Social avoidant behaviour [None]

NARRATIVE: CASE EVENT DATE: 2017
